FAERS Safety Report 22807732 (Version 2)
Quarter: 2025Q2

REPORT INFORMATION
  Report Type: Report from Study
  Country: FR (occurrence: FR)
  Receive Date: 20230810
  Receipt Date: 20250505
  Transmission Date: 20250716
  Serious: Yes (Other)
  Sender: AUROBINDO
  Company Number: FR-MYLANLABS-2023M1078303

PATIENT
  Sex: Male

DRUGS (6)
  1. PREGABALIN [Suspect]
     Active Substance: PREGABALIN
     Indication: Neuralgia
     Route: 048
  2. PREGABALIN [Suspect]
     Active Substance: PREGABALIN
     Indication: Partial seizures
  3. PREGABALIN [Suspect]
     Active Substance: PREGABALIN
     Indication: Generalised anxiety disorder
  4. LYRICA [Suspect]
     Active Substance: PREGABALIN
     Indication: Neuralgia
     Route: 048
  5. LYRICA [Suspect]
     Active Substance: PREGABALIN
     Indication: Partial seizures
  6. LYRICA [Suspect]
     Active Substance: PREGABALIN
     Indication: Generalised anxiety disorder

REACTIONS (4)
  - Seizure [Unknown]
  - Drug dependence [Unknown]
  - Anxiety [Unknown]
  - Withdrawal syndrome [Unknown]
